FAERS Safety Report 5359393-3 (Version None)
Quarter: 2007Q2

REPORT INFORMATION
  Report Type: 
  Country: None (occurrence: None)
  Receive Date: 20070615
  Receipt Date: 20070607
  Transmission Date: 20071010
  Serious: Yes (Hospitalization)
  Sender: FDA-Public Use
  Company Number: AU-ABBOTT-07P-008-0370738-00

PATIENT
  Sex: Female

DRUGS (3)
  1. EPILIM [Suspect]
     Indication: PETIT MAL EPILEPSY
     Route: 048
     Dates: start: 20060701
  2. EPILIM [Suspect]
     Indication: EYE ROLLING
     Route: 048
     Dates: start: 20070501
  3. LAMOTRIGINE [Concomitant]
     Indication: PETIT MAL EPILEPSY

REACTIONS (16)
  - ALOPECIA [None]
  - COORDINATION ABNORMAL [None]
  - DEPRESSED LEVEL OF CONSCIOUSNESS [None]
  - DISTURBANCE IN ATTENTION [None]
  - EYES SUNKEN [None]
  - FATIGUE [None]
  - FEELING ABNORMAL [None]
  - GRAND MAL CONVULSION [None]
  - HAIR DISORDER [None]
  - HAIR TEXTURE ABNORMAL [None]
  - HEADACHE [None]
  - MALAISE [None]
  - NAUSEA [None]
  - PAIN IN EXTREMITY [None]
  - PETIT MAL EPILEPSY [None]
  - UNEVALUABLE EVENT [None]
